FAERS Safety Report 23559097 (Version 5)
Quarter: 2024Q1

REPORT INFORMATION
  Report Type: Spontaneous
  Country: US (occurrence: US)
  Receive Date: 20240223
  Receipt Date: 20240326
  Transmission Date: 20240410
  Serious: No
  Sender: FDA-Public Use
  Company Number: US-PFIZER INC-PV202400024011

PATIENT
  Age: 46 Year
  Sex: Female

DRUGS (1)
  1. IBRANCE [Suspect]
     Active Substance: PALBOCICLIB
     Dosage: UNK

REACTIONS (18)
  - Fatigue [Unknown]
  - Alopecia [Unknown]
  - Nausea [Not Recovered/Not Resolved]
  - Cerebral disorder [Unknown]
  - White blood cell count decreased [Unknown]
  - Neoplasm progression [Unknown]
  - Headache [Unknown]
  - Pollakiuria [Unknown]
  - Oral disorder [Unknown]
  - Malaise [Unknown]
  - White blood cell disorder [Unknown]
  - Red blood cell count abnormal [Unknown]
  - Stomatitis [Unknown]
  - Food allergy [Unknown]
  - Insomnia [Unknown]
  - Mouth swelling [Unknown]
  - Weight decreased [Unknown]
  - Decreased appetite [Unknown]

NARRATIVE: CASE EVENT DATE: 20240307
